FAERS Safety Report 4707185-8 (Version None)
Quarter: 2005Q3

REPORT INFORMATION
  Report Type: 
  Country: None (occurrence: None)
  Receive Date: 20050701
  Receipt Date: 20050623
  Transmission Date: 20060218
  Serious: Yes (Death, Other)
  Sender: FDA-Public Use
  Company Number: USA-2005-0020137

PATIENT
  Age: 48 Year
  Sex: Male
  Weight: 113.4 kg

DRUGS (6)
  1. MORPHINE SULFATE [Suspect]
     Dosage: UD
  2. FLUOXETINE [Suspect]
  3. COCAINE (COCAINE) [Suspect]
  4. NICOTINE [Concomitant]
  5. CAFFEINE [Concomitant]
  6. THEOBROMINE (THEOBROMINE) [Concomitant]

REACTIONS (13)
  - COMPLETED SUICIDE [None]
  - CONTUSION [None]
  - CORONARY ARTERY ATHEROSCLEROSIS [None]
  - DRUG TOXICITY [None]
  - EXCORIATION [None]
  - HEPATIC STEATOSIS [None]
  - HEPATOMEGALY [None]
  - LOSS OF CONSCIOUSNESS [None]
  - MOUTH INJURY [None]
  - MULTIPLE DRUG OVERDOSE [None]
  - MURDER [None]
  - PULMONARY OEDEMA [None]
  - VENTRICULAR HYPERTROPHY [None]
